FAERS Safety Report 15925829 (Version 1)
Quarter: 2019Q1

REPORT INFORMATION
  Report Type: Spontaneous
  Country: PT (occurrence: PT)
  Receive Date: 20190206
  Receipt Date: 20190206
  Transmission Date: 20190417
  Serious: Yes (Other)
  Sender: FDA-Public Use
  Company Number: PT-AUROBINDO-AUR-APL-2019-005548

PATIENT

DRUGS (4)
  1. ACEMETACIN [Suspect]
     Active Substance: ACEMETACIN
     Indication: PRODUCT USED FOR UNKNOWN INDICATION
     Dosage: 60 MG, BID
     Route: 065
     Dates: start: 201309
  2. PARACETAMOL [Suspect]
     Active Substance: ACETAMINOPHEN
     Indication: PRODUCT USED FOR UNKNOWN INDICATION
     Dosage: 325 MILLIGRAM, 3 TIMES A DAY
     Route: 065
     Dates: start: 201309
  3. TRAMADOL. [Suspect]
     Active Substance: TRAMADOL
     Indication: PRODUCT USED FOR UNKNOWN INDICATION
     Dosage: 37.5 MILLIGRAM, 3 TIMES A DAY
     Route: 065
     Dates: start: 201309
  4. METAMIZOLE [Suspect]
     Active Substance: METAMIZOLE
     Indication: PRODUCT USED FOR UNKNOWN INDICATION
     Dosage: 575 MG, BID
     Route: 065
     Dates: start: 201309

REACTIONS (9)
  - Jaundice [Recovered/Resolved]
  - Atelectasis [Recovered/Resolved]
  - Choluria [Recovered/Resolved]
  - Necrosis [Recovered/Resolved]
  - Deficiency of bile secretion [Recovered/Resolved]
  - Hepatic failure [Recovered/Resolved]
  - Pruritus [Recovered/Resolved]
  - Hepatitis acute [Recovered/Resolved]
  - Hepatitis cholestatic [Recovered/Resolved]

NARRATIVE: CASE EVENT DATE: 201402
